FAERS Safety Report 10185198 (Version 1)
Quarter: 2014Q2

REPORT INFORMATION
  Report Type: Spontaneous
  Country: JP (occurrence: JP)
  Receive Date: 20140521
  Receipt Date: 20140521
  Transmission Date: 20141212
  Serious: Yes (Other)
  Sender: FDA-Public Use
  Company Number: JP-MYLANLABS-2014S1010942

PATIENT
  Age: 55 Year
  Sex: Female

DRUGS (3)
  1. LEUPRORELIN [Suspect]
     Indication: ENDOMETRIAL STROMAL SARCOMA
     Dosage: NINE CYCLES; 3.75 MG/BODY EVERY 4 WEEKS
     Route: 065
  2. DOCETAXEL [Suspect]
     Indication: ENDOMETRIAL STROMAL SARCOMA
     Dosage: 60 MG/M2; 6 CYCLES RECEIVED
     Route: 065
  3. CARBOPLATIN [Suspect]
     Indication: ENDOMETRIAL STROMAL SARCOMA
     Dosage: AUC=5; 6 CYCLES RECEIVED
     Route: 065

REACTIONS (2)
  - Neurotoxicity [Unknown]
  - Joint stiffness [Unknown]
